FAERS Safety Report 25529321 (Version 1)
Quarter: 2025Q3

REPORT INFORMATION
  Report Type: Report from Study
  Country: US (occurrence: US)
  Receive Date: 20250708
  Receipt Date: 20250708
  Transmission Date: 20251020
  Serious: Yes (Hospitalization, Other)
  Sender: INCYTE
  Company Number: US-INCYTE CORPORATION-2025IN007289

PATIENT
  Age: 85 Year

DRUGS (3)
  1. JAKAFI [Suspect]
     Active Substance: RUXOLITINIB
     Indication: Polycythaemia vera
     Dosage: (2) 5 MG, BID
  2. JAKAFI [Suspect]
     Active Substance: RUXOLITINIB
     Dosage: (2) 5 MG, BID
  3. JAKAFI [Suspect]
     Active Substance: RUXOLITINIB
     Dosage: (2) 5 MG, BID

REACTIONS (2)
  - Myocardial infarction [Unknown]
  - Product dose omission issue [Recovered/Resolved]
